FAERS Safety Report 4732526-5 (Version None)
Quarter: 2005Q3

REPORT INFORMATION
  Report Type: 
  Country: None (occurrence: None)
  Receive Date: 20050801
  Receipt Date: 20050729
  Transmission Date: 20060218
  Serious: Yes (Hospitalization)
  Sender: FDA-Public Use
  Company Number: 05-NIP00064

PATIENT
  Age: 73 Year
  Sex: Male

DRUGS (18)
  1. NIPENT [Suspect]
     Indication: CHRONIC LYMPHOCYTIC LEUKAEMIA
     Dosage: (7.6 MG), INTRAVENOUS
     Route: 042
     Dates: start: 20050628, end: 20050628
  2. CYTOXAN [Suspect]
     Indication: CHRONIC LYMPHOCYTIC LEUKAEMIA
     Dosage: (1140 MG), INTRAVENOUS
     Route: 042
     Dates: start: 20050628, end: 20050628
  3. RITUXAN [Suspect]
     Indication: CHRONIC LYMPHOCYTIC LEUKAEMIA
     Dosage: (712.5 MG), INTRAVENOUS
     Route: 042
  4. ALEVE [Concomitant]
  5. ASPIRIN [Concomitant]
  6. FLOMAX [Concomitant]
  7. PROCARDIA [Concomitant]
  8. LOZOL [Concomitant]
  9. ALLOPURINOL [Concomitant]
  10. COMPAZINE [Concomitant]
  11. ACYCLOVIR [Concomitant]
  12. BACTRIM DS [Concomitant]
  13. BENADRYL [Concomitant]
  14. DEXAMETHESONE [Concomitant]
  15. KYTRIL [Concomitant]
  16. TYLENOL (CAPLET) [Concomitant]
  17. MIRACLE MOUTHWASH (MOUTHWASH) [Concomitant]
  18. DIFLUCAN [Concomitant]

REACTIONS (5)
  - DEHYDRATION [None]
  - FLUID INTAKE REDUCED [None]
  - MALAISE [None]
  - PYREXIA [None]
  - TUMOUR LYSIS SYNDROME [None]
